FAERS Safety Report 7733764-X (Version None)
Quarter: 2011Q3

REPORT INFORMATION
  Report Type: 
  Country: None (occurrence: None)
  Receive Date: 20110907
  Receipt Date: 20110824
  Transmission Date: 20111222
  Serious: Yes (Hospitalization, Other)
  Sender: FDA-Public Use
  Company Number: PHHO2011US14384

PATIENT
  Sex: Male
  Weight: 78.01 kg

DRUGS (15)
  1. ASPIRIN [Concomitant]
     Indication: CORONARY ARTERY DISEASE
     Dosage: 81 MG, QD
     Route: 048
     Dates: start: 20020301, end: 20110116
  2. NITROGLYCERIN [Concomitant]
     Indication: CORONARY ARTERY DISEASE
  3. EXJADE [Suspect]
     Indication: MYELODYSPLASTIC SYNDROME
     Dosage: 1000 MG, QD
     Dates: start: 20080804, end: 20110116
  4. COREG [Concomitant]
     Indication: CORONARY ARTERY DISEASE
     Dosage: 12.5 MG, BID
     Dates: start: 20020301, end: 20110116
  5. MULTI-VITAMINS [Concomitant]
     Indication: SUPPLEMENTATION THERAPY
     Dosage: 1 DF, QD
     Route: 048
     Dates: end: 20110116
  6. PLAVIX [Concomitant]
     Indication: CORONARY ARTERY DISEASE
     Dosage: 75 MG, QD
     Route: 048
     Dates: start: 20100218, end: 20110116
  7. MAGNESIUM [Concomitant]
     Indication: SUPPLEMENTATION THERAPY
     Dosage: 300 MG, QHS
     Route: 048
     Dates: start: 20100101, end: 20110116
  8. FISH OIL [Concomitant]
     Indication: SUPPLEMENTATION THERAPY
     Dosage: 1 CAP, QD
     Route: 048
     Dates: start: 20090101, end: 20110116
  9. GABAPENTIN [Concomitant]
     Indication: PORPHYRIA ACUTE
     Dosage: 300 MG, UNK
     Route: 048
  10. MORPHINE [Concomitant]
     Indication: PORPHYRIA ACUTE
     Dosage: 30 MG, PRN
     Route: 048
     Dates: start: 20060501, end: 20110116
  11. GABAPENTIN [Concomitant]
     Dosage: 400 MG, UNK
     Route: 048
     Dates: end: 20110116
  12. MORPHINE [Concomitant]
     Indication: PAIN
  13. NITROGLYCERIN [Concomitant]
     Indication: ANGINA PECTORIS
     Dosage: 4 MG, PRN
     Dates: start: 20020301, end: 20110116
  14. SPIRONOLACTONE [Concomitant]
     Indication: PULMONARY OEDEMA
     Dosage: 25 MG, QD
     Route: 048
     Dates: start: 20090821, end: 20110116
  15. VITAMIN E [Concomitant]
     Indication: SUPPLEMENTATION THERAPY
     Dosage: 400 MG, QD
     Route: 048
     Dates: end: 20110116

REACTIONS (8)
  - SEPSIS [None]
  - DYSPNOEA [None]
  - DIABETES MELLITUS [None]
  - ASPARTATE AMINOTRANSFERASE INCREASED [None]
  - PLEURAL EFFUSION [None]
  - ALANINE AMINOTRANSFERASE INCREASED [None]
  - HYPOXIA [None]
  - PNEUMONIA [None]
